FAERS Safety Report 19287974 (Version 3)
Quarter: 2021Q3

REPORT INFORMATION
  Report Type: Spontaneous
  Country: NO (occurrence: NO)
  Receive Date: 20210521
  Receipt Date: 20210816
  Transmission Date: 20211014
  Serious: Yes (Death, Life-Threatening, Hospitalization, Other)
  Sender: FDA-Public Use
  Company Number: NO-PURDUE-USA-2021-0262425

PATIENT
  Age: 30 Year
  Sex: Male

DRUGS (6)
  1. METHADONE [Suspect]
     Active Substance: METHADONE HYDROCHLORIDE
     Dosage: UNK (INJECTED METHADONE SYRUP REGULARLY OVER SEVERAL YEARS)
     Route: 065
  2. NON?PMN BUPRENORPHINE [Suspect]
     Active Substance: BUPRENORPHINE
     Dosage: UNK (INJECTED BUPRENORPHINE TABLETS REGULARLY OVER SEVERAL YEARS)
     Route: 051
  3. NON?PMN BUPRENORPHINE [Suspect]
     Active Substance: BUPRENORPHINE
     Dosage: UNK (INJECTED BUPRENORPHINE TABLETS REGULARLY OVER SEVERAL YEARS)
     Route: 051
  4. METHADONE [Suspect]
     Active Substance: METHADONE HYDROCHLORIDE
     Indication: DRUG DEPENDENCE
     Dosage: UNK
     Route: 042
  5. METHADONE [Suspect]
     Active Substance: METHADONE HYDROCHLORIDE
     Dosage: UNK (INJECTED METHADONE SYRUP REGULARLY OVER SEVERAL YEARS)
     Route: 042
  6. NON?PMN BUPRENORPHINE [Suspect]
     Active Substance: BUPRENORPHINE
     Indication: DRUG DEPENDENCE
     Dosage: UNK
     Route: 051

REACTIONS (31)
  - Weight decreased [Fatal]
  - Renal failure [Fatal]
  - Hepatitis C [Unknown]
  - Reaction to excipient [Fatal]
  - Connective tissue disorder [Unknown]
  - Malabsorption [Unknown]
  - Clavicle fracture [Unknown]
  - Cachexia [Fatal]
  - Drug dependence [Fatal]
  - Wheelchair user [Unknown]
  - Skin infection [Unknown]
  - Myalgia [Unknown]
  - Osteomyelitis chronic [Unknown]
  - Staphylococcal infection [Unknown]
  - Loss of personal independence in daily activities [Unknown]
  - Leukopenia [Unknown]
  - Kidney fibrosis [Not Recovered/Not Resolved]
  - Thrombocytopenia [Unknown]
  - Vomiting [Unknown]
  - Drug abuse [Fatal]
  - Myocardial fibrosis [Not Recovered/Not Resolved]
  - Femoral neck fracture [Unknown]
  - Splenomegaly [Unknown]
  - Pancreatic failure [Not Recovered/Not Resolved]
  - Pancreatic cyst [Not Recovered/Not Resolved]
  - Intentional product use issue [Unknown]
  - Type 1 diabetes mellitus [Unknown]
  - Product deposit [Fatal]
  - Multiple organ dysfunction syndrome [Fatal]
  - Normocytic anaemia [Unknown]
  - Impaired healing [Unknown]
